FAERS Safety Report 23522512 (Version 1)
Quarter: 2024Q1

REPORT INFORMATION
  Report Type: Spontaneous
  Country: US (occurrence: US)
  Receive Date: 20240214
  Receipt Date: 20240214
  Transmission Date: 20240409
  Serious: No
  Sender: FDA-Public Use
  Company Number: US-E2BLSMVVAL-SPO/USA/24/0002074

PATIENT
  Age: 39 Year
  Sex: Female
  Weight: 61 kg

DRUGS (3)
  1. SAPROPTERIN DIHYDROCHLORIDE [Suspect]
     Active Substance: SAPROPTERIN DIHYDROCHLORIDE
     Indication: Phenylketonuria
     Dosage: DOSE AND ROUTE: TAKE OR DISSOLVE TWELVE 100 MG TABLETS IN 4 TO 8 OUNCES OF WATER OR APPLE JUICE AND
     Route: 048
  2. MEDICAL FOOD [Concomitant]
     Active Substance: MEDICAL FOOD
     Dosage: 60 10G-49 POWD PACK
  3. GLYTACTIN BUILD 20/20 [Concomitant]

REACTIONS (2)
  - Product dose omission issue [Unknown]
  - Illness [Unknown]
